FAERS Safety Report 9002576 (Version 3)
Quarter: 2013Q2

REPORT INFORMATION
  Report Type: Report from Study
  Country: US (occurrence: US)
  Receive Date: 20130107
  Receipt Date: 20130515
  Transmission Date: 20140414
  Serious: Yes (Hospitalization)
  Sender: FDA-Public Use
  Company Number: PHEH2013US000552

PATIENT
  Age: 59 Year
  Sex: Male
  Weight: 63 kg

DRUGS (9)
  1. AFINITOR [Suspect]
     Indication: BREAST CANCER
     Dosage: 7.5 MG/DAY
     Route: 048
     Dates: start: 20121116
  2. LASIX [Concomitant]
     Indication: HYPERTENSION
     Dosage: 40 MG/DAY
     Route: 048
     Dates: start: 201210
  3. LASIX [Concomitant]
     Indication: FLUID RETENTION
  4. SPIRONOLACTONE [Concomitant]
     Indication: HYPERTENSION
     Dosage: 50 MG, BID
     Route: 048
  5. PROPANOLOL [Concomitant]
     Indication: HYPERTENSION
     Dosage: 10 MG, BID
     Route: 048
  6. PANTOPRAZOLE [Concomitant]
     Indication: PEPTIC ULCER
     Dosage: 40 MG/DAY
     Route: 048
  7. ZOLOFT [Concomitant]
     Indication: DEPRESSION
     Dosage: 50 MG/DAY
     Route: 048
     Dates: start: 201212
  8. DILADID [Concomitant]
     Indication: PAIN
     Dosage: 20 MG
     Route: 048
     Dates: start: 201210
  9. FERROUS SULFATE [Concomitant]
     Indication: ANAEMIA
     Dosage: 325 MG
     Route: 048

REACTIONS (8)
  - Varices oesophageal [Recovered/Resolved]
  - Gastrointestinal haemorrhage [Recovered/Resolved]
  - Sepsis [Recovered/Resolved]
  - Urinary tract infection [Recovered/Resolved]
  - Abdominal pain [Recovered/Resolved]
  - Pneumonia [Recovered/Resolved]
  - Pyrexia [Recovered/Resolved]
  - Chills [Recovered/Resolved]
